FAERS Safety Report 7151133-0 (Version None)
Quarter: 2010Q4

REPORT INFORMATION
  Report Type: 
  Country: None (occurrence: None)
  Receive Date: 20101210
  Receipt Date: 20101202
  Transmission Date: 20110411
  Serious: Yes (Death)
  Sender: FDA-Public Use
  Company Number: US-BRISTOL-MYERS SQUIBB COMPANY-15425572

PATIENT
  Age: 53 Year
  Sex: Male

DRUGS (3)
  1. ARIPIPRAZOLE IM DEPOT [Suspect]
     Indication: SCHIZOPHRENIA
     Dosage: LAST DEPOT INJ RECEIVED ON 19OCT10. COMMENCED IM DEPOT(PHASE3) ON 10FEB10
     Route: 030
     Dates: start: 20080905
  2. KLONOPIN [Concomitant]
     Dates: start: 20090529
  3. IBUPROFEN [Concomitant]
     Dates: start: 19850101

REACTIONS (1)
  - DEATH [None]
